FAERS Safety Report 13528924 (Version 1)
Quarter: 2017Q2

REPORT INFORMATION
  Report Type: Report from Study
  Country: US (occurrence: US)
  Receive Date: 20170509
  Receipt Date: 20170509
  Transmission Date: 20170830
  Serious: Yes (Hospitalization)
  Sender: FDA-Public Use
  Company Number: US-ACTELION-A-NJ2017-153526

PATIENT
  Age: 80 Year
  Sex: Male
  Weight: 102.4 kg

DRUGS (2)
  1. OPSUMIT [Suspect]
     Active Substance: MACITENTAN
     Indication: PULMONARY ARTERIAL HYPERTENSION
     Dosage: 10 MG, QD
     Route: 048
  2. AMLODIPINE [Concomitant]
     Active Substance: AMLODIPINE BESYLATE

REACTIONS (4)
  - Carotid artery occlusion [Unknown]
  - Heart rate decreased [Unknown]
  - Cardiac pacemaker insertion [Unknown]
  - Carotid revascularisation [Unknown]

NARRATIVE: CASE EVENT DATE: 201705
